FAERS Safety Report 17581292 (Version 2)
Quarter: 2020Q2

REPORT INFORMATION
  Report Type: Report from Study
  Country: BE (occurrence: BE)
  Receive Date: 20200325
  Receipt Date: 20200403
  Transmission Date: 20200713
  Serious: Yes (Other)
  Sender: FDA-Public Use
  Company Number: BE-TAKEDA-2020TUS015201

PATIENT
  Sex: Male

DRUGS (2)
  1. VEDOLIZUMAB [Suspect]
     Active Substance: VEDOLIZUMAB
     Indication: INFLAMMATORY BOWEL DISEASE
     Dosage: UNK
     Route: 042
     Dates: start: 20180316, end: 20181107
  2. FURADANTINE [Concomitant]
     Active Substance: NITROFURANTOIN
     Dosage: UNK

REACTIONS (2)
  - Osteonecrosis [Unknown]
  - Cystitis [Unknown]

NARRATIVE: CASE EVENT DATE: 201812
